FAERS Safety Report 5380739-4 (Version None)
Quarter: 2007Q3

REPORT INFORMATION
  Report Type: 
  Country: None (occurrence: None)
  Receive Date: 20070706
  Receipt Date: 20070626
  Transmission Date: 20080115
  Serious: Yes (Other)
  Sender: FDA-Public Use
  Company Number: NL-ASTRAZENECA-2007AC00871

PATIENT
  Age: 29 Year
  Sex: Female
  Weight: 76 kg

DRUGS (2)
  1. LOSEC [Suspect]
     Indication: DYSPEPSIA
     Route: 048
     Dates: start: 20061126, end: 20070119
  2. FOLIC ACID [Concomitant]
     Dosage: TAKEN BEFORE, DURING AND AFTER CONCEPTION
     Dates: start: 20030801

REACTIONS (2)
  - ABORTION SPONTANEOUS [None]
  - DRUG EXPOSURE DURING PREGNANCY [None]
